FAERS Safety Report 15723230 (Version 2)
Quarter: 2019Q1

REPORT INFORMATION
  Report Type: Spontaneous
  Country: US (occurrence: US)
  Receive Date: 20181214
  Receipt Date: 20190102
  Transmission Date: 20190417
  Serious: No
  Sender: FDA-Public Use
  Company Number: US-PFIZER INC-2017102190

PATIENT
  Age: 4 Year
  Sex: Male

DRUGS (3)
  1. GENOTROPIN [Suspect]
     Active Substance: SOMATROPIN
     Dosage: 0.8 MG, DAILY
     Dates: start: 2016, end: 201809
  2. GENOTROPIN [Suspect]
     Active Substance: SOMATROPIN
     Dosage: 5 MG, UNK
  3. GENOTROPIN [Suspect]
     Active Substance: SOMATROPIN
     Dosage: 0.4 MG, CYCLIC (6 DAYS A WEEK)
     Dates: end: 201605

REACTIONS (5)
  - Thyroxine free increased [Unknown]
  - Blood potassium increased [Unknown]
  - Blood thyroid stimulating hormone decreased [Unknown]
  - Blood sodium increased [Unknown]
  - Product dose omission [Unknown]
